FAERS Safety Report 5072078-6 (Version None)
Quarter: 2006Q3

REPORT INFORMATION
  Report Type: 
  Country: None (occurrence: None)
  Receive Date: 20060807
  Receipt Date: 20060724
  Transmission Date: 20061208
  Serious: Yes (Hospitalization, Other)
  Sender: FDA-Public Use
  Company Number: CA-BAYER-200613088BCC

PATIENT
  Age: 36 Year
  Sex: Female

DRUGS (11)
  1. EPHEDRINE [Suspect]
     Indication: DRUG USE FOR UNKNOWN INDICATION
     Dosage: TOTAL DAILY DOSE: 150 MG  UNIT DOSE: 75 MG
     Route: 048
  2. MEDROXYPROGESTERONE ACETATE [Concomitant]
     Indication: CONTRACEPTION
     Dosage: TOTAL DAILY DOSE: 150 MG
     Route: 030
  3. SERTRALINE [Concomitant]
     Dosage: TOTAL DAILY DOSE: 125 MG
     Route: 048
  4. CAFFEINE [Concomitant]
     Dosage: AS USED: 400-200 MG
     Route: 048
  5. ASPIRIN [Concomitant]
     Dosage: TOTAL DAILY DOSE: 162 MG  UNIT DOSE: 81 MG
     Route: 048
  6. VITAMIN B COMPLEX CAP [Concomitant]
     Route: 048
  7. ASCORBIC ACID [Concomitant]
     Route: 048
  8. VITAMIN E [Concomitant]
     Route: 048
  9. CALCIUM GLUCONATE [Concomitant]
  10. MAGNESIUM [Concomitant]
     Route: 048
  11. DIPHENHYDRAMINE HCL [Concomitant]
     Dosage: TOTAL DAILY DOSE: 100 MG
     Route: 048

REACTIONS (5)
  - HEPATOTOXICITY [None]
  - MUSCLE SPASMS [None]
  - PAIN [None]
  - REFUSAL OF EXAMINATION [None]
  - RHABDOMYOLYSIS [None]
